FAERS Safety Report 11572344 (Version 6)
Quarter: 2016Q2

REPORT INFORMATION
  Report Type: Spontaneous
  Country: US (occurrence: US)
  Receive Date: 20150929
  Receipt Date: 20160418
  Transmission Date: 20160815
  Serious: Yes (Other)
  Sender: FDA-Public Use
  Company Number: US-PFIZER INC-2015322209

PATIENT
  Age: 51 Year
  Sex: Female
  Weight: 66 kg

DRUGS (5)
  1. GEODON [Suspect]
     Active Substance: ZIPRASIDONE HYDROCHLORIDE\ZIPRASIDONE MESYLATE
     Dosage: UNK
     Route: 048
     Dates: start: 200101, end: 200105
  2. GEODON [Suspect]
     Active Substance: ZIPRASIDONE HYDROCHLORIDE\ZIPRASIDONE MESYLATE
     Dosage: 10 MG, 2X/DAY
     Route: 048
     Dates: start: 200102, end: 200105
  3. VALIUM [Concomitant]
     Active Substance: DIAZEPAM
     Indication: SPEECH DISORDER
     Dosage: 15 MG, 1X/DAY, IN THE MORNING
     Route: 048
  4. MOBAN [Concomitant]
     Active Substance: MOLINDONE HYDROCHLORIDE
     Dosage: 30 MG, 1X/DAY
     Route: 048
  5. COGENTIN [Concomitant]
     Active Substance: BENZTROPINE MESYLATE
     Indication: ADVERSE EVENT
     Dosage: 1/2MG TABLET IN THE MORNING
     Route: 048

REACTIONS (6)
  - Liver disorder [Unknown]
  - Disorientation [Not Recovered/Not Resolved]
  - Dizziness [Not Recovered/Not Resolved]
  - Adverse drug reaction [Unknown]
  - Impaired driving ability [Not Recovered/Not Resolved]
  - Vision blurred [Not Recovered/Not Resolved]

NARRATIVE: CASE EVENT DATE: 2001
